FAERS Safety Report 20640953 (Version 1)
Quarter: 2022Q1

REPORT INFORMATION
  Report Type: Report from Study
  Country: US (occurrence: US)
  Receive Date: 20220327
  Receipt Date: 20220327
  Transmission Date: 20220423
  Serious: Yes (Hospitalization)
  Sender: FDA-Public Use
  Company Number: US-JNJFOC-20220260924

PATIENT
  Age: 66 Year
  Sex: Female

DRUGS (30)
  1. MACITENTAN [Suspect]
     Active Substance: MACITENTAN
     Indication: Pulmonary arterial hypertension
     Route: 048
     Dates: start: 20190917
  2. MACITENTAN [Suspect]
     Active Substance: MACITENTAN
     Route: 048
     Dates: start: 2016
  3. SELEXIPAG [Suspect]
     Active Substance: SELEXIPAG
     Indication: Pulmonary arterial hypertension
     Route: 048
     Dates: start: 2017
  4. ISOSORBIDE DINITRATE [Concomitant]
     Active Substance: ISOSORBIDE DINITRATE
  5. ISOSORBIDE MONONITRATE [Concomitant]
     Active Substance: ISOSORBIDE MONONITRATE
  6. NITROGLYCERIN [Concomitant]
     Active Substance: NITROGLYCERIN
  7. SILDENAFIL [Concomitant]
     Active Substance: SILDENAFIL
  8. UPTRAVI [Concomitant]
     Active Substance: SELEXIPAG
  9. POTASSIUM [Concomitant]
     Active Substance: POTASSIUM
  10. METFORMIN [Concomitant]
     Active Substance: METFORMIN HYDROCHLORIDE
  11. DILTIAZEM [Concomitant]
     Active Substance: DILTIAZEM
  12. SERTRALINE [Concomitant]
     Active Substance: SERTRALINE HYDROCHLORIDE
  13. VITAMIN B12 [Concomitant]
     Active Substance: CYANOCOBALAMIN
  14. FOLIC ACID [Concomitant]
     Active Substance: FOLIC ACID
  15. ACETAMINOPHEN [Concomitant]
     Active Substance: ACETAMINOPHEN
  16. POLYETHYLENE GLYCOLS [Concomitant]
     Active Substance: POLYETHYLENE GLYCOLS
  17. CALCIUM CARBONATE [Concomitant]
     Active Substance: CALCIUM CARBONATE
  18. DOCUSATE SODIUM [Concomitant]
     Active Substance: DOCUSATE SODIUM
  19. BENEFIBER [Concomitant]
     Active Substance: STARCH, WHEAT
  20. ALBUTEROL [Concomitant]
     Active Substance: ALBUTEROL
  21. LIDOCAINE [Concomitant]
     Active Substance: LIDOCAINE
  22. SENNA LAXATIVE [Concomitant]
     Active Substance: SENNOSIDES
  23. BUMETANIDE [Concomitant]
     Active Substance: BUMETANIDE
  24. ASPIRIN [Concomitant]
     Active Substance: ASPIRIN
  25. LORATADINE [Concomitant]
     Active Substance: LORATADINE
  26. MAGNESIUM OXIDE [Concomitant]
     Active Substance: MAGNESIUM OXIDE
  27. WIXELA INHUB [Concomitant]
     Active Substance: FLUTICASONE PROPIONATE\SALMETEROL XINAFOATE
  28. ATORVASTATIN [Concomitant]
     Active Substance: ATORVASTATIN
  29. FERROUS SULFATE [Concomitant]
     Active Substance: FERROUS SULFATE
  30. FLONASE [Concomitant]
     Active Substance: FLUTICASONE PROPIONATE

REACTIONS (4)
  - Acute respiratory failure [Unknown]
  - Pneumonia [Recovered/Resolved]
  - Upper respiratory tract infection [Recovered/Resolved]
  - Pulmonary oedema [Recovered/Resolved]

NARRATIVE: CASE EVENT DATE: 20220204
